FAERS Safety Report 6402462-7 (Version None)
Quarter: 2009Q4

REPORT INFORMATION
  Report Type: 
  Country: None (occurrence: None)
  Receive Date: 20091009
  Receipt Date: 20090930
  Transmission Date: 20100525
  Serious: Yes (Other)
  Sender: FDA-Public Use
  Company Number: ADR34132009

PATIENT
  Age: 87 Year
  Sex: Male

DRUGS (6)
  1. CIPROFLOXACIN [Suspect]
     Dosage: 500 MG ORAL
     Route: 048
     Dates: start: 20070622, end: 20070622
  2. DIGOXIN [Concomitant]
  3. FYBOGEL [Concomitant]
  4. MEBEVERINE [Concomitant]
  5. MOMETASONE FUROATE [Concomitant]
  6. WARFARIN SODIUM [Concomitant]

REACTIONS (4)
  - CONVULSION [None]
  - DYSKINESIA [None]
  - PRESYNCOPE [None]
  - VISUAL IMPAIRMENT [None]
